FAERS Safety Report 4973641-0 (Version None)
Quarter: 2006Q2

REPORT INFORMATION
  Report Type: 
  Country: None (occurrence: None)
  Receive Date: 20060414
  Receipt Date: 20060406
  Transmission Date: 20061013
  Serious: Yes (Hospitalization, Disabling, Other)
  Sender: FDA-Public Use
  Company Number: US-ABBOTT-06P-163-0330407-00

PATIENT
  Age: 13 Year
  Sex: Female

DRUGS (2)
  1. BIAXIN [Suspect]
     Indication: LABYRINTHITIS
     Dates: start: 19980101
  2. CEPHALEXIN MONOHYDRATE [Suspect]
     Indication: STREPTOCOCCAL INFECTION
     Dates: start: 19980201

REACTIONS (18)
  - BLINDNESS [None]
  - CHEILITIS [None]
  - DIARRHOEA [None]
  - DYSPHAGIA [None]
  - DYSPNOEA [None]
  - DYSURIA [None]
  - EYE DISCHARGE [None]
  - EYE HAEMORRHAGE [None]
  - EYE SWELLING [None]
  - LUNG DISORDER [None]
  - OCULAR HYPERAEMIA [None]
  - PYREXIA [None]
  - RED BLOOD CELLS URINE POSITIVE [None]
  - STEVENS-JOHNSON SYNDROME [None]
  - SYSTEMIC CANDIDA [None]
  - URINARY TRACT INFECTION [None]
  - VARICELLA [None]
  - WHITE BLOOD CELLS URINE POSITIVE [None]
